FAERS Safety Report 5500837-1 (Version None)
Quarter: 2007Q4

REPORT INFORMATION
  Report Type: 
  Country: None (occurrence: None)
  Receive Date: 20071029
  Receipt Date: 20071024
  Transmission Date: 20080405
  Serious: Yes (Other)
  Sender: FDA-Public Use
  Company Number: B0492395A

PATIENT
  Age: 36 Year
  Sex: Male
  Weight: 107 kg

DRUGS (4)
  1. BUPROPION HCL [Suspect]
     Indication: SMOKING CESSATION THERAPY
     Dosage: 150MG PER DAY
     Route: 048
     Dates: start: 20071003, end: 20071012
  2. METHYLPREDNISOLONE ACETATE [Concomitant]
     Route: 014
     Dates: start: 20071003, end: 20071003
  3. DICLOFENAC [Concomitant]
     Route: 048
     Dates: start: 20071002
  4. CHLORAMPHENICOL [Concomitant]
     Indication: CONJUNCTIVITIS
     Dates: start: 20070831, end: 20070905

REACTIONS (4)
  - DISORIENTATION [None]
  - HALLUCINATION [None]
  - LOSS OF CONSCIOUSNESS [None]
  - PARANOIA [None]
